FAERS Safety Report 4422983-6 (Version None)
Quarter: 2004Q3

REPORT INFORMATION
  Report Type: 
  Country: None (occurrence: None)
  Receive Date: 20040805
  Receipt Date: 20040727
  Transmission Date: 20050211
  Serious: Yes (Other)
  Sender: FDA-Public Use
  Company Number: 208111

PATIENT
  Age: 12 Year
  Sex: Male

DRUGS (4)
  1. XOLAIR [Suspect]
     Indication: ASTHMA
     Dosage: 375 MG , Q2W, SUBCUTANEOUS
     Route: 058
     Dates: start: 20030101
  2. FLONASE [Concomitant]
  3. ZYRTEC [Concomitant]
  4. NASACORT [Concomitant]

REACTIONS (1)
  - MACULOPATHY [None]
